FAERS Safety Report 7225440-7 (Version None)
Quarter: 2011Q1

REPORT INFORMATION
  Report Type: 
  Country: None (occurrence: None)
  Receive Date: 20110113
  Receipt Date: 20101119
  Transmission Date: 20110831
  Serious: Yes (Other)
  Sender: FDA-Public Use
  Company Number: US-ROCHE-752810

PATIENT
  Sex: Female

DRUGS (3)
  1. RANIBIZUMAB [Suspect]
     Route: 031
  2. BEVACIZUMAB [Suspect]
     Route: 031
  3. BIMATOPROST [Concomitant]

REACTIONS (2)
  - ANTERIOR CHAMBER INFLAMMATION [None]
  - EYE PAIN [None]
